FAERS Safety Report 7998032-X (Version None)
Quarter: 2011Q4

REPORT INFORMATION
  Report Type: 
  Country: None (occurrence: None)
  Receive Date: 20111208
  Receipt Date: 20111129
  Transmission Date: 20120403
  Serious: Yes (Other)
  Sender: FDA-Public Use
  Company Number: 2011028682

PATIENT
  Age: 65 Year
  Sex: Female
  Weight: 68.0396 kg

DRUGS (22)
  1. HIZENTRA [Suspect]
     Indication: IMMUNODEFICIENCY COMMON VARIABLE
     Dosage: (11 G 1X/WEEK, INFUSED 55ML VIA 4 SITES OVER 1HR 13MIN SUBCUTANEOUS), (SUBCUTANEOUS), (SUBCUTANEOUS)
     Route: 058
     Dates: start: 20110329
  2. HIZENTRA [Suspect]
     Indication: IMMUNODEFICIENCY COMMON VARIABLE
     Dosage: (11 G 1X/WEEK, INFUSED 55ML VIA 4 SITES OVER 1HR 13MIN SUBCUTANEOUS), (SUBCUTANEOUS), (SUBCUTANEOUS)
     Route: 058
     Dates: start: 20110510
  3. HIZENTRA [Suspect]
  4. SINGULAIR [Concomitant]
  5. LEVOTHYROXINE SODIUM [Concomitant]
  6. HIZENTRA [Suspect]
  7. HIZENTRA [Suspect]
  8. HIZENTRA [Suspect]
  9. PRILOSEC [Concomitant]
  10. MEDROL [Concomitant]
  11. SPIRONOLACTONE [Concomitant]
  12. XYZAL [Concomitant]
  13. ROPINIROLE [Concomitant]
  14. MULTIVITAMIN (DAILY MULTIVITAMIN) [Concomitant]
  15. HIZENTRA [Suspect]
  16. HIZENTRA [Suspect]
  17. CALCIUM CARBONATE [Concomitant]
  18. HIZENTRA [Suspect]
  19. OMNARIS (CICLESONIDE) [Concomitant]
  20. SERTRALINE HYDROCHLORIDE [Concomitant]
  21. HIZENTRA [Suspect]
  22. MUCINEX [Concomitant]

REACTIONS (5)
  - INFUSION SITE PAIN [None]
  - INFUSION SITE OEDEMA [None]
  - INFUSION SITE PRURITUS [None]
  - INFLUENZA [None]
  - INFUSION SITE ERYTHEMA [None]
